FAERS Safety Report 9701374 (Version 1)
Quarter: 2013Q4

REPORT INFORMATION
  Report Type: Spontaneous
  Country: US (occurrence: US)
  Receive Date: 20131121
  Receipt Date: 20131121
  Transmission Date: 20140711
  Serious: No
  Sender: FDA-Public Use
  Company Number: US-GILEAD-2008-0016640

PATIENT
  Sex: Female

DRUGS (13)
  1. LETAIRIS [Suspect]
     Indication: PULMONARY ARTERIAL HYPERTENSION
     Route: 048
     Dates: start: 20080228, end: 20080425
  2. CENTRUM SILVER [Concomitant]
     Route: 048
  3. TYLENOL [Concomitant]
     Route: 048
  4. TAMOXIFEN CITRATE [Concomitant]
     Route: 048
  5. KLOR-CON [Concomitant]
     Route: 048
  6. NEXIUM [Concomitant]
     Route: 048
  7. HYDROCHLOROTHIAZIDE [Concomitant]
     Route: 048
  8. ELAVIL [Concomitant]
     Route: 048
  9. TRENTAL [Concomitant]
     Route: 048
  10. PROCARDIA XL [Concomitant]
     Route: 048
  11. METHOTREXATE [Concomitant]
     Route: 048
     Dates: start: 20070201
  12. PREDNISONE [Concomitant]
     Route: 048
     Dates: start: 20070528
  13. MAGNESIUM OXIDE [Concomitant]
     Route: 048
     Dates: start: 20070528

REACTIONS (1)
  - Oedema peripheral [None]
